FAERS Safety Report 24636829 (Version 3)
Quarter: 2025Q1

REPORT INFORMATION
  Report Type: Spontaneous
  Country: US (occurrence: US)
  Receive Date: 20241119
  Receipt Date: 20250110
  Transmission Date: 20250409
  Serious: Yes (Other)
  Sender: MERZ
  Company Number: US-Merz Pharmaceuticals GmbH-2024110000063

PATIENT

DRUGS (5)
  1. XEOMIN [Suspect]
     Active Substance: INCOBOTULINUMTOXINA
     Indication: Skin wrinkling
     Dosage: 44 INTERNATIONAL UNIT
     Route: 030
     Dates: start: 20241014, end: 20241014
  2. XEOMIN [Suspect]
     Active Substance: INCOBOTULINUMTOXINA
     Indication: Skin wrinkling
     Dosage: 44 INTERNATIONAL UNIT
     Route: 058
     Dates: start: 20241014, end: 20241014
  3. XEOMIN [Suspect]
     Active Substance: INCOBOTULINUMTOXINA
     Indication: Skin cosmetic procedure
  4. XEOMIN [Suspect]
     Active Substance: INCOBOTULINUMTOXINA
     Indication: Skin wrinkling
  5. XANAX [Concomitant]
     Active Substance: ALPRAZOLAM

REACTIONS (7)
  - Deep vein thrombosis [Unknown]
  - Costochondritis [Unknown]
  - Adverse event [Unknown]
  - Migraine [Unknown]
  - Vision blurred [Unknown]
  - Incorrect route of product administration [Unknown]
  - Product preparation issue [Unknown]

NARRATIVE: CASE EVENT DATE: 20241014
